FAERS Safety Report 4709369-1 (Version None)
Quarter: 2005Q3

REPORT INFORMATION
  Report Type: 
  Country: None (occurrence: None)
  Receive Date: 20050706
  Receipt Date: 20050706
  Transmission Date: 20060218
  Serious: Yes (Life-Threatening, Hospitalization)
  Sender: FDA-Public Use
  Company Number: None

PATIENT
  Age: 63 Year
  Sex: Female

DRUGS (1)
  1. ENALAPRIL [Suspect]
     Indication: CARDIAC FAILURE

REACTIONS (1)
  - ANGIONEUROTIC OEDEMA [None]
